FAERS Safety Report 20065690 (Version 1)
Quarter: 2021Q4

REPORT INFORMATION
  Report Type: Report from Study
  Country: US (occurrence: US)
  Receive Date: 20211113
  Receipt Date: 20211113
  Transmission Date: 20220304
  Serious: Yes (Hospitalization, Other)
  Sender: FDA-Public Use
  Company Number: US-TAKEDA-US201601692

PATIENT
  Age: 12 Year
  Sex: Male

DRUGS (3)
  1. IDURSULFASE [Suspect]
     Active Substance: IDURSULFASE
     Indication: Mucopolysaccharidosis II
     Dosage: 0.5 MILLIGRAM/KILOGRAM, 1X/WEEK (EVERY WEEK)
     Route: 041
     Dates: start: 20061204, end: 20070108
  2. IDURSULFASE [Suspect]
     Active Substance: IDURSULFASE
     Dosage: 0.5 MILLIGRAM/KILOGRAM, 1X/WEEK (EVERY WEEK)
     Route: 042
     Dates: start: 20070109
  3. IDURSULFASE [Suspect]
     Active Substance: IDURSULFASE
     Dosage: 0.7 MILLIGRAM/KILOGRAM, 1X/WEEK (EVERY WEEK)
     Route: 041
     Dates: start: 20120315

REACTIONS (1)
  - Hydrocephalus [Recovered/Resolved]

NARRATIVE: CASE EVENT DATE: 20130411
